FAERS Safety Report 7899591-8 (Version None)
Quarter: 2011Q4

REPORT INFORMATION
  Report Type: 
  Country: None (occurrence: None)
  Receive Date: 20111107
  Receipt Date: 20110915
  Transmission Date: 20120403
  Serious: No
  Sender: FDA-Public Use
  Company Number: US-AMGEN-USASP2011047606

PATIENT
  Sex: Female

DRUGS (2)
  1. ENBREL [Suspect]
     Indication: RHEUMATOID ARTHRITIS
     Dosage: 50 MG, QWK
     Dates: start: 20110201, end: 20110701
  2. HUMIRA [Concomitant]
     Dosage: UNK

REACTIONS (4)
  - DRY MOUTH [None]
  - DECREASED APPETITE [None]
  - MYALGIA [None]
  - ARTHRITIS [None]
